FAERS Safety Report 22176693 (Version 2)
Quarter: 2023Q2

REPORT INFORMATION
  Report Type: Report from Study
  Country: US (occurrence: US)
  Receive Date: 20230405
  Receipt Date: 20230407
  Transmission Date: 20230721
  Serious: No
  Sender: FDA-Public Use
  Company Number: US-SANOFI-01555738

PATIENT
  Age: 5 Year
  Sex: Female
  Weight: 27.7 kg

DRUGS (2)
  1. DUPILUMAB [Suspect]
     Active Substance: DUPILUMAB
     Indication: Dermatitis atopic
     Dosage: 600 MG, 1X
     Route: 058
  2. DUPILUMAB [Suspect]
     Active Substance: DUPILUMAB
     Dosage: 300 MG, Q4W
     Route: 058

REACTIONS (5)
  - Lip erythema [Unknown]
  - Eyelid exfoliation [Unknown]
  - Lip exfoliation [Unknown]
  - Erythema of eyelid [Unknown]
  - Off label use [Unknown]
